FAERS Safety Report 6404559-4 (Version None)
Quarter: 2009Q4

REPORT INFORMATION
  Report Type: 
  Country: None (occurrence: None)
  Receive Date: 20091016
  Receipt Date: 20091013
  Transmission Date: 20100525
  Serious: Yes (Death, Other)
  Sender: FDA-Public Use
  Company Number: PHHY2009JP24846

PATIENT
  Age: 38 Year
  Sex: Female

DRUGS (3)
  1. GLEEVEC [Suspect]
     Indication: MALIGNANT MELANOMA
     Dosage: 200 MG/DAY
     Route: 048
     Dates: start: 20070911
  2. GLEEVEC [Suspect]
     Dosage: 100-150 MG/DAY
     Route: 048
     Dates: end: 20080401
  3. OXYCONTIN [Suspect]
     Dosage: 40 MG DAILY
     Route: 048
     Dates: start: 20071026

REACTIONS (6)
  - ASCITES [None]
  - GENERAL PHYSICAL HEALTH DETERIORATION [None]
  - METASTASES TO LUNG [None]
  - PLEURAL EFFUSION [None]
  - SURGERY [None]
  - THROMBOCYTOPENIA [None]
